FAERS Safety Report 7157002-4 (Version None)
Quarter: 2010Q4

REPORT INFORMATION
  Report Type: 
  Country: None (occurrence: None)
  Receive Date: 20101214
  Receipt Date: 20100125
  Transmission Date: 20110411
  Serious: No
  Sender: FDA-Public Use
  Company Number: US-ASTRAZENECA-2010SE03284

PATIENT
  Age: 948 Month
  Sex: Female
  Weight: 72.1 kg

DRUGS (4)
  1. CRESTOR [Suspect]
     Indication: HYPERCHOLESTEROLAEMIA
     Route: 048
  2. TOPROL-XL [Concomitant]
     Indication: HYPERTENSION
  3. LASIX [Concomitant]
     Indication: HYPERTENSION
  4. COUMADIN [Concomitant]
     Indication: COAGULOPATHY

REACTIONS (1)
  - BLOOD PRESSURE INCREASED [None]
